FAERS Safety Report 11728291 (Version 1)
Quarter: 2015Q4

REPORT INFORMATION
  Report Type: Spontaneous
  Country: US (occurrence: US)
  Receive Date: 20151112
  Receipt Date: 20151112
  Transmission Date: 20160304
  Serious: No
  Sender: FDA-Public Use
  Company Number: US-PFIZER INC-2015382376

PATIENT
  Age: 60 Year
  Sex: Female
  Weight: 71 kg

DRUGS (16)
  1. PRISTIQ EXTENDED RELEASE [Suspect]
     Active Substance: DESVENLAFAXINE SUCCINATE
     Indication: DEPRESSION
     Dosage: 50 MG, UNK
     Route: 048
     Dates: start: 201510, end: 201510
  2. DULOXETINE. [Concomitant]
     Active Substance: DULOXETINE
     Dosage: UNK
  3. LORAZEPAM. [Concomitant]
     Active Substance: LORAZEPAM
     Dosage: 0.75 MG, DAILY( 0.5 MG DURING THE DAY AND 1/2 AT NIGHT)
  4. PRAZOSIN [Concomitant]
     Active Substance: PRAZOSIN
     Indication: POST-TRAUMATIC STRESS DISORDER
     Dosage: 1 MG, 2X/DAY
     Route: 048
  5. AMITRIPTYLINE HCL [Concomitant]
     Active Substance: AMITRIPTYLINE
     Indication: GASTRIC ULCER
     Dosage: 50 MG, DAILY(50MG TABLET BY MOUTH AT BEDTIME)
     Route: 048
  6. VITAMIN B12 [Concomitant]
     Active Substance: CYANOCOBALAMIN
     Dosage: UNK
  7. CHLORDIAZEPOXIDE/CLIDINIUM [Concomitant]
     Indication: ABDOMINAL PAIN
     Dosage: 1 DF, 3X/DAY(1 CAPSULE BY MOUTH THREE TIMES A DAY BEFORE EATING AS NEEDED)
     Route: 048
  8. AMITRIPTYLINE HCL [Concomitant]
     Active Substance: AMITRIPTYLINE
     Indication: PAIN
     Dosage: 25 MG, DAILY(50MG TABLET BY MOUTH AT BEDTIME,1/2 TABLET TONIGHT )
     Route: 048
     Dates: start: 20151106, end: 20151106
  9. AMITRIPTYLINE HCL [Concomitant]
     Active Substance: AMITRIPTYLINE
     Indication: DEPRESSION
  10. VITAMIN B [Concomitant]
     Active Substance: VITAMIN B
     Dosage: UNK
  11. CALCIUM MAGNESIUM WITH VITAMIN D3 [Concomitant]
     Dosage: UNK
  12. PRISTIQ EXTENDED RELEASE [Suspect]
     Active Substance: DESVENLAFAXINE SUCCINATE
     Dosage: 100 MG, 1X/DAY(100MG TABLET ONCE A DAY BY MOUTH WITH FOOD)
     Route: 048
     Dates: start: 201510
  13. MORPHINE [Concomitant]
     Active Substance: MORPHINE
     Dosage: UNK, 3X/DAY
  14. TOPIRAMATE. [Concomitant]
     Active Substance: TOPIRAMATE
     Indication: PAIN IN EXTREMITY
     Dosage: 100 MG, 2X/DAY
  15. CHLORDIAZEPOXIDE/CLIDINIUM [Concomitant]
     Indication: ULCER
  16. PANTOPRAZOLE [Concomitant]
     Active Substance: PANTOPRAZOLE SODIUM
     Dosage: 40 MG, 2X/DAY (ONE TABLET EVERY MORNING AND 30 MINUTES BEFORE EVENING MEAL)

REACTIONS (3)
  - Hot flush [Recovered/Resolved]
  - Hyperhidrosis [Recovered/Resolved]
  - Disease recurrence [Recovered/Resolved]

NARRATIVE: CASE EVENT DATE: 20151106
